FAERS Safety Report 9661206 (Version 1)
Quarter: 2013Q4

REPORT INFORMATION
  Report Type: Report from Study
  Country: CA (occurrence: CA)
  Receive Date: 20131031
  Receipt Date: 20131031
  Transmission Date: 20140711
  Serious: Yes (Other)
  Sender: FDA-Public Use
  Company Number: CA-ABBVIE-13P-028-1162649-00

PATIENT
  Sex: Female

DRUGS (2)
  1. HUMIRA [Suspect]
     Indication: PSORIATIC ARTHROPATHY
     Route: 058
     Dates: start: 20120830
  2. CALCIUM SUPPLEMENTS [Suspect]
     Indication: OSTEOPOROSIS
     Route: 048
     Dates: start: 2013, end: 2013

REACTIONS (7)
  - Spinal column injury [Unknown]
  - Cough [Unknown]
  - Tuberculosis [Recovered/Resolved]
  - Osteoporosis [Not Recovered/Not Resolved]
  - Bronchopneumonia [Not Recovered/Not Resolved]
  - Back pain [Unknown]
  - Constipation [Unknown]
